FAERS Safety Report 8832800 (Version 1)
Quarter: 2012Q4

REPORT INFORMATION
  Report Type: Spontaneous
  Country: US (occurrence: None)
  Receive Date: 20121009
  Receipt Date: 20121009
  Transmission Date: 20130627
  Serious: Yes (Life-Threatening, Other)
  Sender: FDA-Public Use
  Company Number: None

PATIENT
  Age: 79 Year
  Sex: Female
  Weight: 72.58 kg

DRUGS (2)
  1. CARVEDILOL [Suspect]
     Indication: PREVENTION
     Dates: start: 20120726, end: 20120929
  2. LOVASTATIN [Concomitant]

REACTIONS (5)
  - Dizziness [None]
  - Presyncope [None]
  - Vertigo [None]
  - Exercise tolerance decreased [None]
  - Heart rate decreased [None]
